FAERS Safety Report 9334378 (Version 1)
Quarter: 2013Q2

REPORT INFORMATION
  Report Type: Spontaneous
  Country: US (occurrence: US)
  Receive Date: 20130606
  Receipt Date: 20130606
  Transmission Date: 20140414
  Serious: No
  Sender: FDA-Public Use
  Company Number: US-AMGEN-USASP2012078923

PATIENT
  Age: 58 Year
  Sex: Female
  Weight: 53.52 kg

DRUGS (2)
  1. PROLIA [Suspect]
     Indication: OSTEOPOROSIS POSTMENOPAUSAL
     Dosage: 60 MG, UNK
     Route: 058
     Dates: start: 20121127
  2. NOVOLOG [Concomitant]
     Dosage: UNK
     Dates: start: 2010

REACTIONS (1)
  - Hypoglycaemia [Recovered/Resolved]
